FAERS Safety Report 21740167 (Version 2)
Quarter: 2022Q4

REPORT INFORMATION
  Report Type: Spontaneous
  Country: GR (occurrence: GR)
  Receive Date: 20221216
  Receipt Date: 20221227
  Transmission Date: 20230113
  Serious: No
  Sender: FDA-Public Use
  Company Number: GR-PFIZER INC-202201356457

PATIENT
  Age: 94 Year
  Sex: Female

DRUGS (1)
  1. PAXLOVID [Suspect]
     Active Substance: NIRMATRELVIR\RITONAVIR
     Indication: COVID-19 treatment
     Dosage: 3 TABLETS IN THE MORNING AND 3 TABLETS AT NIGHT
     Dates: start: 20221203, end: 20221207

REACTIONS (3)
  - Abdominal pain upper [Recovered/Resolved]
  - Dysgeusia [Recovered/Resolved]
  - Product prescribing error [Unknown]

NARRATIVE: CASE EVENT DATE: 20221204
